FAERS Safety Report 7397102-7 (Version None)
Quarter: 2011Q2

REPORT INFORMATION
  Report Type: 
  Country: None (occurrence: None)
  Receive Date: 20110406
  Receipt Date: 20110329
  Transmission Date: 20111010
  Serious: Yes (Death)
  Sender: FDA-Public Use
  Company Number: A0912797A

PATIENT
  Age: 50 Year
  Sex: Male
  Weight: 57.7 kg

DRUGS (1)
  1. VOTRIENT [Suspect]
     Dosage: 800MG PER DAY
     Route: 048
     Dates: start: 20101207, end: 20110114

REACTIONS (3)
  - METASTATIC RENAL CELL CARCINOMA [None]
  - NEOPLASM MALIGNANT [None]
  - DEATH [None]
